FAERS Safety Report 10411991 (Version 4)
Quarter: 2015Q2

REPORT INFORMATION
  Report Type: Spontaneous
  Country: GB (occurrence: GB)
  Receive Date: 20140827
  Receipt Date: 20150522
  Transmission Date: 20150821
  Serious: Yes (Hospitalization, Other)
  Sender: FDA-Public Use
  Company Number: PHFR2014GB005854

PATIENT
  Sex: Male

DRUGS (2)
  1. ZOMETA [Suspect]
     Active Substance: ZOLEDRONIC ACID
     Indication: PRODUCT USED FOR UNKNOWN INDICATION
     Dosage: UNK
     Route: 042
  2. ZOMETA [Suspect]
     Active Substance: ZOLEDRONIC ACID
     Dosage: 4 MG, UNK
     Route: 042

REACTIONS (15)
  - Chronic obstructive pulmonary disease [Unknown]
  - Contusion [Unknown]
  - Laceration [Unknown]
  - Haemoglobin decreased [Unknown]
  - Back pain [Unknown]
  - Lower respiratory tract infection [Unknown]
  - Malaise [Unknown]
  - Creatinine renal clearance decreased [Unknown]
  - Dyspnoea exertional [Unknown]
  - Insomnia [Unknown]
  - Fatigue [Unknown]
  - Dyspnoea [Unknown]
  - Sputum discoloured [Unknown]
  - Skin disorder [Unknown]
  - Asthenia [Unknown]
